FAERS Safety Report 25905246 (Version 1)
Quarter: 2025Q4

REPORT INFORMATION
  Report Type: Spontaneous
  Country: US (occurrence: US)
  Receive Date: 20251010
  Receipt Date: 20251010
  Transmission Date: 20260118
  Serious: No
  Sender: SANOFI AVENTIS
  Company Number: US-SANOFI-02678416

PATIENT
  Sex: Male

DRUGS (2)
  1. LANTUS [Suspect]
     Active Substance: INSULIN GLARGINE
     Indication: Type 2 diabetes mellitus
     Dosage: UNK UNK, BID (120 U LANTUS DAILY, DIVIDED INTO A MORNING AND EVENING DOSE)
  2. HUMULIN R [Concomitant]
     Active Substance: INSULIN HUMAN
     Dosage: UNK

REACTIONS (2)
  - Visual impairment [Unknown]
  - Off label use [Unknown]
